FAERS Safety Report 20610858 (Version 1)
Quarter: 2022Q1

REPORT INFORMATION
  Report Type: Spontaneous
  Country: FR (occurrence: FR)
  Receive Date: 20220318
  Receipt Date: 20220318
  Transmission Date: 20220423
  Serious: Yes (Hospitalization, Other)
  Sender: FDA-Public Use
  Company Number: None

PATIENT
  Age: 76 Year
  Sex: Male
  Weight: 66 kg

DRUGS (7)
  1. SOTROVIMAB [Suspect]
     Active Substance: SOTROVIMAB
     Indication: COVID-19 treatment
     Dosage: 500 MG (TOTAL)
     Route: 065
     Dates: end: 20220201
  2. PROLEUKIN [Suspect]
     Active Substance: ALDESLEUKIN
     Indication: Myelodysplastic syndrome
     Dosage: 1 MILLION IU
     Route: 058
     Dates: start: 201909
  3. COMIRNATY [Suspect]
     Active Substance: TOZINAMERAN
     Indication: COVID-19 immunisation
     Dosage: 1 DF (D1+D2+D3)
     Route: 030
     Dates: start: 20210216, end: 20210610
  4. COMIRNATY [Suspect]
     Active Substance: TOZINAMERAN
     Dosage: 1 DF (D1+D2+D3)
     Route: 030
     Dates: start: 20210216, end: 20210610
  5. COMIRNATY [Suspect]
     Active Substance: TOZINAMERAN
     Dosage: 1 DF (D1+D2+D3)
     Route: 030
     Dates: start: 20210216, end: 20210610
  6. VIDAZA [Suspect]
     Active Substance: AZACITIDINE
     Indication: Myelodysplastic syndrome
     Dosage: 130 MG, CYC (5 DAY CYCLES, EVERY 5 WEEKS)
     Route: 058
     Dates: start: 201605
  7. SPIKEVAX [Suspect]
     Active Substance: ELASOMERAN
     Indication: COVID-19 immunisation
     Dosage: 1 DF (R1)
     Route: 030
     Dates: start: 20211228

REACTIONS (2)
  - Vaccination failure [Recovered/Resolved]
  - Drug ineffective [Recovered/Resolved]

NARRATIVE: CASE EVENT DATE: 20220131
